FAERS Safety Report 11681857 (Version 1)
Quarter: 2015Q4

REPORT INFORMATION
  Report Type: Spontaneous
  Country: US (occurrence: None)
  Receive Date: 20151028
  Receipt Date: 20151028
  Transmission Date: 20160304
  Serious: Yes (Hospitalization, Disabling)
  Sender: FDA-Public Use
  Company Number: None

PATIENT
  Age: 29 Year
  Sex: Male
  Weight: 83.92 kg

DRUGS (1)
  1. PAXIL [Suspect]
     Active Substance: PAROXETINE HYDROCHLORIDE
     Indication: SOCIAL PHOBIA
     Route: 048
     Dates: start: 20120901, end: 20140901

REACTIONS (13)
  - Dysphoria [None]
  - Speech disorder [None]
  - Impaired work ability [None]
  - Suicidal ideation [None]
  - Emotional poverty [None]
  - Depersonalisation [None]
  - Diplopia [None]
  - Major depression [None]
  - Cognitive disorder [None]
  - Visual impairment [None]
  - Amnesia [None]
  - Vitreous floaters [None]
  - Decreased interest [None]

NARRATIVE: CASE EVENT DATE: 20140901
